FAERS Safety Report 7097910-6 (Version None)
Quarter: 2010Q4

REPORT INFORMATION
  Report Type: 
  Country: None (occurrence: None)
  Receive Date: 20101112
  Receipt Date: 20101105
  Transmission Date: 20110411
  Serious: Yes (Life-Threatening)
  Sender: FDA-Public Use
  Company Number: JP-ASTRAZENECA-2010SE49996

PATIENT
  Age: 13259 Day
  Sex: Male

DRUGS (3)
  1. SEROQUEL [Suspect]
     Dosage: 450 MG ONCE
     Route: 048
     Dates: start: 20100702, end: 20100702
  2. HIBERNA [Suspect]
     Dosage: 900 MG ONCE
     Route: 048
     Dates: start: 20100702, end: 20100702
  3. DEPAKENE [Suspect]
     Dosage: 7600 MG ONCE
     Route: 048
     Dates: start: 20100702

REACTIONS (7)
  - COMA [None]
  - FAMILY STRESS [None]
  - GAIT DISTURBANCE [None]
  - INTENTIONAL OVERDOSE [None]
  - MOVEMENT DISORDER [None]
  - MULTIPLE DRUG OVERDOSE INTENTIONAL [None]
  - SUICIDE ATTEMPT [None]
